FAERS Safety Report 21610025 (Version 1)
Quarter: 2022Q4

REPORT INFORMATION
  Report Type: Spontaneous
  Country: JP (occurrence: JP)
  Receive Date: 20221117
  Receipt Date: 20221117
  Transmission Date: 20230113
  Serious: Yes (Death)
  Sender: FDA-Public Use
  Company Number: JP-ASPEN-JPL2020JP011078AA

PATIENT
  Age: 62 Year
  Sex: Female
  Weight: 53 kg

DRUGS (3)
  1. ADRIACIN [Suspect]
     Active Substance: DOXORUBICIN HYDROCHLORIDE
     Indication: Angiosarcoma
     Dosage: UNK
     Route: 065
  2. PAZOPANIB [Suspect]
     Active Substance: PAZOPANIB
     Indication: Angiosarcoma
     Dosage: 400 MG
     Route: 048
  3. YONDELIS [Suspect]
     Active Substance: TRABECTEDIN
     Indication: Angiosarcoma
     Dosage: UNK
     Route: 065

REACTIONS (1)
  - Putamen haemorrhage [Fatal]
